FAERS Safety Report 15598916 (Version 1)
Quarter: 2018Q4

REPORT INFORMATION
  Report Type: Spontaneous
  Country: AU (occurrence: AU)
  Receive Date: 20181108
  Receipt Date: 20181108
  Transmission Date: 20190205
  Serious: Yes (Other)
  Sender: FDA-Public Use
  Company Number: AU-GILEAD-2018-0371779

PATIENT
  Age: 38 Year
  Sex: Male

DRUGS (16)
  1. VIREAD [Suspect]
     Active Substance: TENOFOVIR DISOPROXIL FUMARATE
     Indication: HIV INFECTION
     Dosage: UNK
     Route: 065
  2. ATENOLOL. [Concomitant]
     Active Substance: ATENOLOL
  3. SILDENAFIL. [Concomitant]
     Active Substance: SILDENAFIL
  4. CANDESARTAN AN [Concomitant]
  5. NIFEDIPINE. [Concomitant]
     Active Substance: NIFEDIPINE
  6. LAMIVUDINE. [Concomitant]
     Active Substance: LAMIVUDINE
  7. EMTRIVA [Concomitant]
     Active Substance: EMTRICITABINE
     Indication: HIV INFECTION
  8. LERCANIDIPINE HYDROCHLORIDE [Concomitant]
     Active Substance: LERCANIDIPINE HYDROCHLORIDE
  9. VALACICLOVIR [Concomitant]
     Active Substance: VALACYCLOVIR HYDROCHLORIDE
  10. DOLUTEGRAVIR [Concomitant]
     Active Substance: DOLUTEGRAVIR
  11. OLMESARTAN [Concomitant]
     Active Substance: OLMESARTAN
  12. PENICILLIN [PENICILLIN NOS] [Concomitant]
  13. AMLODIPINE [Concomitant]
     Active Substance: AMLODIPINE BESYLATE
  14. AURORIX [Concomitant]
     Active Substance: MOCLOBEMIDE
  15. MARAVIROC [Concomitant]
     Active Substance: MARAVIROC
  16. CLAVULANATE POTASSIUM [Concomitant]
     Active Substance: CLAVULANATE POTASSIUM

REACTIONS (1)
  - Focal dyscognitive seizures [Recovered/Resolved]
